FAERS Safety Report 11855537 (Version 1)
Quarter: 2015Q4

REPORT INFORMATION
  Report Type: Spontaneous
  Country: US (occurrence: US)
  Receive Date: 20151221
  Receipt Date: 20151221
  Transmission Date: 20160305
  Serious: Yes (Death, Other)
  Sender: FDA-Public Use
  Company Number: US-DRREDDYS-USA/USA/15/0054806

PATIENT
  Age: 50 Month
  Sex: Male

DRUGS (6)
  1. GEMCITABINE [Suspect]
     Active Substance: GEMCITABINE\GEMCITABINE HYDROCHLORIDE
     Indication: ANGIOSARCOMA
     Route: 065
  2. GEMCITABINE [Suspect]
     Active Substance: GEMCITABINE\GEMCITABINE HYDROCHLORIDE
     Route: 065
  3. SORAFENIB [Concomitant]
     Active Substance: SORAFENIB
     Indication: ANGIOSARCOMA
     Route: 065
  4. DOCETAXEL. [Suspect]
     Active Substance: DOCETAXEL
     Indication: ANGIOSARCOMA
     Route: 065
  5. BEVACIZUMAB [Suspect]
     Active Substance: BEVACIZUMAB
     Indication: ANGIOSARCOMA
     Route: 065
  6. BEVACIZUMAB [Suspect]
     Active Substance: BEVACIZUMAB
     Route: 065

REACTIONS (5)
  - Disease progression [Fatal]
  - Pleural effusion [Unknown]
  - Hepatomegaly [Unknown]
  - Lymphoedema [Unknown]
  - Abdominal distension [Recovered/Resolved]
